FAERS Safety Report 6271702-X (Version None)
Quarter: 2009Q3

REPORT INFORMATION
  Report Type: 
  Country: None (occurrence: None)
  Receive Date: 20090713
  Receipt Date: 20080910
  Transmission Date: 20100115
  Serious: Yes (Other)
  Sender: FDA-Public Use
  Company Number: 52222

PATIENT
  Age: 57 Year
  Sex: Female
  Weight: 81.6475 kg

DRUGS (1)
  1. MIDAZOLAM HCL [Suspect]
     Indication: SEDATION
     Dosage: 8 MG TIRATED OVER 29 MINUTES IV
     Route: 042
     Dates: start: 20080905

REACTIONS (1)
  - DRUG INEFFECTIVE [None]
